FAERS Safety Report 6915214-6 (Version None)
Quarter: 2010Q3

REPORT INFORMATION
  Report Type: 
  Country: None (occurrence: None)
  Receive Date: 20100809
  Receipt Date: 20100730
  Transmission Date: 20110219
  Serious: Yes (Hospitalization, Other)
  Sender: FDA-Public Use
  Company Number: US-ABBOTT-10P-163-0658898-00

PATIENT
  Sex: Male

DRUGS (6)
  1. HUMIRA [Suspect]
     Indication: CROHN'S DISEASE
     Dates: start: 20091001, end: 20100401
  2. HUMIRA [Suspect]
     Dates: start: 20100501
  3. SAIZEN [Suspect]
     Indication: GROWTH HORMONE DEFICIENCY
     Dates: start: 20091224, end: 20100401
  4. SAIZEN [Suspect]
  5. SAIZEN [Suspect]
  6. LEUPROLIDE ACETATE [Concomitant]
     Indication: PRECOCIOUS PUBERTY
     Dates: start: 20090101

REACTIONS (3)
  - PNEUMONIA [None]
  - PNEUMONIA LEGIONELLA [None]
  - PYREXIA [None]
